FAERS Safety Report 9111715 (Version 1)
Quarter: 2013Q1

REPORT INFORMATION
  Report Type: Spontaneous
  Country: US (occurrence: US)
  Receive Date: 20130219
  Receipt Date: 20130219
  Transmission Date: 20140127
  Serious: No
  Sender: FDA-Public Use
  Company Number: US-BRISTOL-MYERS SQUIBB COMPANY-16662744

PATIENT
  Sex: 0

DRUGS (3)
  1. ORENCIA [Suspect]
     Route: 058
  2. ARAVA [Suspect]
  3. CELEBREX [Suspect]

REACTIONS (1)
  - Rash generalised [Unknown]
